FAERS Safety Report 14776763 (Version 3)
Quarter: 2018Q2

REPORT INFORMATION
  Report Type: Spontaneous
  Country: US (occurrence: US)
  Receive Date: 20180419
  Receipt Date: 20180525
  Transmission Date: 20180711
  Serious: No
  Sender: FDA-Public Use
  Company Number: US-UNITED THERAPEUTICS-UNT-2018-005380

PATIENT
  Sex: Male

DRUGS (2)
  1. REMODULIN [Suspect]
     Active Substance: TREPROSTINIL
     Indication: PULMONARY ARTERIAL HYPERTENSION
     Dosage: 0.05 ?G/KG, CONTINUING (INFUSION RATE: 0.034 ML/HR)
     Route: 058
     Dates: start: 20171031
  2. SILDENAFIL. [Suspect]
     Active Substance: SILDENAFIL
     Indication: PRODUCT USED FOR UNKNOWN INDICATION
     Dosage: 2 TAB DAILY
     Route: 065

REACTIONS (6)
  - Diarrhoea [Unknown]
  - Oedema [Unknown]
  - Nausea [Unknown]
  - Night sweats [Not Recovered/Not Resolved]
  - Feeding disorder [Unknown]
  - Weight decreased [Unknown]

NARRATIVE: CASE EVENT DATE: 20180322
